FAERS Safety Report 8125955-3 (Version None)
Quarter: 2012Q1

REPORT INFORMATION
  Report Type: 
  Country: None (occurrence: None)
  Receive Date: 20120209
  Receipt Date: 20120109
  Transmission Date: 20120608
  Serious: No
  Sender: FDA-Public Use
  Company Number: US-BAUSCH-2012BL000179

PATIENT
  Age: 56 Year
  Sex: Male

DRUGS (5)
  1. ALPHAGAN P [Concomitant]
     Indication: OPEN ANGLE GLAUCOMA
     Route: 047
     Dates: start: 19970101
  2. DORZOLAMIDE HCL AND TIMOLOL MALEATE [Suspect]
     Indication: OPEN ANGLE GLAUCOMA
     Route: 047
     Dates: start: 20090101
  3. RESTASIS [Concomitant]
     Indication: DRY EYE
     Route: 047
     Dates: start: 20100101
  4. XALATAN /SWE/ [Concomitant]
     Indication: OPEN ANGLE GLAUCOMA
     Route: 047
     Dates: start: 19970101
  5. DORZOLAMIDE HCL AND TIMOLOL MALEATE [Suspect]
     Indication: ANGLE CLOSURE GLAUCOMA
     Route: 047
     Dates: start: 20090101

REACTIONS (2)
  - EYE PAIN [None]
  - EYE IRRITATION [None]
